FAERS Safety Report 7979051-6 (Version None)
Quarter: 2011Q4

REPORT INFORMATION
  Report Type: 
  Country: None (occurrence: None)
  Receive Date: 20111214
  Receipt Date: 20111208
  Transmission Date: 20120403
  Serious: No
  Sender: FDA-Public Use
  Company Number: US-PFIZER INC-2011300762

PATIENT
  Sex: Female
  Weight: 112.47 kg

DRUGS (1)
  1. CORTISPORIN [Suspect]
     Dosage: UNK
     Route: 047

REACTIONS (1)
  - EYE PRURITUS [None]
